FAERS Safety Report 13866592 (Version 1)
Quarter: 2017Q3

REPORT INFORMATION
  Report Type: Spontaneous
  Country: FR (occurrence: FR)
  Receive Date: 20170814
  Receipt Date: 20170814
  Transmission Date: 20171127
  Serious: Yes (Death)
  Sender: FDA-Public Use
  Company Number: FR-BAUSCH-BL-2017-024024

PATIENT
  Age: 83 Year
  Sex: Male

DRUGS (7)
  1. METRONIDAZOLE. [Suspect]
     Active Substance: METRONIDAZOLE
     Indication: OSTEITIS
     Route: 042
     Dates: start: 20170504, end: 20170525
  2. VANCOMYCINE MYLAN [Suspect]
     Active Substance: VANCOMYCIN
     Route: 048
     Dates: start: 20170608, end: 2017
  3. VANCOMYCINE MYLAN [Suspect]
     Active Substance: VANCOMYCIN
     Route: 048
     Dates: start: 20170529
  4. VANCOMYCINE MYLAN [Suspect]
     Active Substance: VANCOMYCIN
     Indication: OSTEITIS
     Route: 042
     Dates: start: 20170504, end: 20170609
  5. PARACETAMOL [Concomitant]
     Active Substance: ACETAMINOPHEN
     Indication: PRODUCT USED FOR UNKNOWN INDICATION
  6. AXEPIM [Suspect]
     Active Substance: CEFEPIME HYDROCHLORIDE
     Indication: OSTEITIS
     Dosage: POWDER FOR PARENTERAL USE
     Route: 042
     Dates: start: 20170504, end: 20170611
  7. FLAGYL [Suspect]
     Active Substance: METRONIDAZOLE\METRONIDAZOLE HYDROCHLORIDE
     Indication: OSTEITIS
     Route: 048
     Dates: start: 20170526, end: 20170604

REACTIONS (2)
  - Renal failure [Fatal]
  - Clostridium difficile colitis [Fatal]

NARRATIVE: CASE EVENT DATE: 20170524
